FAERS Safety Report 16372998 (Version 5)
Quarter: 2021Q2

REPORT INFORMATION
  Report Type: Spontaneous
  Country: US (occurrence: US)
  Receive Date: 20190530
  Receipt Date: 20210617
  Transmission Date: 20210716
  Serious: Yes (Hospitalization, Other)
  Sender: FDA-Public Use
  Company Number: US-INCYTE CORPORATION-2019IN005349

PATIENT

DRUGS (22)
  1. NAVITOCLAX [Suspect]
     Active Substance: NAVITOCLAX
     Dosage: 100 MILLIGRAM, QD
     Route: 048
     Dates: start: 20180905, end: 20180911
  2. AMLODIPINE BESYLATE. [Concomitant]
     Active Substance: AMLODIPINE BESYLATE
     Indication: HYPERTENSIVE HEART DISEASE
     Dosage: 5 MILLIGRAM, QD
     Route: 048
     Dates: start: 20080211
  3. JAKAFI [Suspect]
     Active Substance: RUXOLITINIB
     Indication: MYELOFIBROSIS
     Dosage: UNK
     Route: 048
     Dates: start: 20130303
  4. ALBUTEROL SULFATE. [Concomitant]
     Active Substance: ALBUTEROL SULFATE
     Indication: SARCOIDOSIS
     Dosage: 2.5 MILLIGRAM, TID
     Dates: start: 20180116
  5. LANSOPRAZOLE. [Concomitant]
     Active Substance: LANSOPRAZOLE
     Indication: HYPERTENSIVE HEART DISEASE
     Dosage: 20 MILLIGRAM, QD
     Route: 048
     Dates: start: 20121023
  6. OXYBUTYNIN CHLORIDE. [Concomitant]
     Active Substance: OXYBUTYNIN CHLORIDE
     Indication: POLLAKIURIA
     Dosage: 5 MILLIGRAM, QD
     Route: 048
     Dates: start: 20170920
  7. FLOMAX [Concomitant]
     Active Substance: TAMSULOSIN HYDROCHLORIDE
     Indication: URINARY TRACT INFECTION
     Dosage: 0.4 MILLIGRAM, QD
     Route: 048
     Dates: start: 20190313, end: 20190507
  8. TONIC [Concomitant]
     Indication: MUSCLE SPASMS
     Dosage: UNK
     Route: 065
     Dates: start: 20190313
  9. NAVITOCLAX [Suspect]
     Active Substance: NAVITOCLAX
     Dosage: 300 MILLIGRAM, QD
     Route: 048
     Dates: start: 20180919, end: 20190503
  10. CITALOPRAM [Concomitant]
     Active Substance: CITALOPRAM HYDROBROMIDE
     Indication: DEPRESSION
     Dosage: 20 MILLIGRAM, QD
     Route: 048
     Dates: start: 20131022
  11. JAKAFI [Suspect]
     Active Substance: RUXOLITINIB
     Dosage: 20 MILLIGRAM, BID (10 MG, 2 IN 1 D)
     Route: 048
     Dates: start: 20180829, end: 20190327
  12. NAVITOCLAX [Suspect]
     Active Substance: NAVITOCLAX
     Indication: MYELOFIBROSIS
     Dosage: 50 MILLIGRAM, QD
     Route: 048
     Dates: start: 20180829, end: 20180904
  13. FLOVENT [Concomitant]
     Active Substance: FLUTICASONE PROPIONATE
     Indication: SARCOIDOSIS
     Dosage: 110 MICROGRAM
     Route: 045
     Dates: start: 20160726
  14. ULORIC [Concomitant]
     Active Substance: FEBUXOSTAT
     Indication: NEPHROLITHIASIS
     Dosage: 4 GRAM, QD
     Route: 048
     Dates: start: 20171018
  15. AMOXICILLIN. [Concomitant]
     Active Substance: AMOXICILLIN
     Indication: URINARY TRACT INFECTION
     Dosage: UNK
     Route: 065
     Dates: start: 20190313, end: 20190507
  16. ARANESP [Concomitant]
     Active Substance: DARBEPOETIN ALFA
     Indication: ANAEMIA
     Dosage: 300 MICROGRAM, AS REQUIRED
     Route: 058
     Dates: start: 20181219
  17. JAKAFI [Suspect]
     Active Substance: RUXOLITINIB
     Dosage: 20 MILLIGRAM (10 MG, 2 IN 1D)
     Route: 048
     Dates: start: 20180829
  18. NAVITOCLAX [Suspect]
     Active Substance: NAVITOCLAX
     Dosage: 200 MILLIGRAM, QD
     Route: 048
     Dates: start: 20180912, end: 20180918
  19. NAVITOCLAX [Suspect]
     Active Substance: NAVITOCLAX
     Dosage: 300 MILLIGRAM, QD
     Route: 048
     Dates: start: 20190521
  20. HYOSCYAMINE SULFATE. [Concomitant]
     Active Substance: HYOSCYAMINE SULFATE
     Indication: IRRITABLE BOWEL SYNDROME
     Dosage: 0.375 MILLIGRAM, BID
     Route: 048
     Dates: start: 20170430
  21. CHOLESTYRAMINE. [Concomitant]
     Active Substance: CHOLESTYRAMINE
     Indication: BLOOD CHOLESTEROL INCREASED
     Dosage: 4 GM, AS REQUIRED
     Route: 048
     Dates: start: 20181120
  22. ASPIRIN                            /00002701/ [Concomitant]
     Active Substance: ASPIRIN
     Indication: COAGULOPATHY
     Dosage: 81 MILLIGRAM, QD
     Route: 048
     Dates: start: 20080211

REACTIONS (11)
  - Red blood cell count decreased [Not Recovered/Not Resolved]
  - Dyspnoea [Unknown]
  - Pneumonia [Recovered/Resolved]
  - Neutrophil count decreased [Unknown]
  - Asthenia [Unknown]
  - Haemoglobin decreased [Unknown]
  - Platelet count decreased [Not Recovered/Not Resolved]
  - Dizziness [Unknown]
  - Pyrexia [Unknown]
  - Syncope [Unknown]
  - White blood cell count decreased [Unknown]

NARRATIVE: CASE EVENT DATE: 20190503
